FAERS Safety Report 12714087 (Version 1)
Quarter: 2016Q3

REPORT INFORMATION
  Report Type: Spontaneous
  Country: IE (occurrence: IE)
  Receive Date: 20160905
  Receipt Date: 20160905
  Transmission Date: 20161109
  Serious: Yes (Hospitalization)
  Sender: FDA-Public Use
  Company Number: IE-INGENUS PHARMACEUTICALS, LLC-ING201608-000036

PATIENT
  Age: 60 Year
  Sex: Male

DRUGS (10)
  1. GLICLAZIDE [Concomitant]
     Active Substance: GLICLAZIDE
  2. ASPIRIN. [Concomitant]
     Active Substance: ASPIRIN
  3. BISOPROLOL [Concomitant]
     Active Substance: BISOPROLOL
  4. SIMVASTATIN. [Suspect]
     Active Substance: SIMVASTATIN
  5. PROBENCID AND COLCHICINE [Suspect]
     Active Substance: COLCHICINE\PROBENECID
     Indication: GOUT
  6. VALSARTAN. [Concomitant]
     Active Substance: VALSARTAN
  7. FRUSEMIDE [Concomitant]
     Active Substance: FUROSEMIDE
  8. ALFACALCIDOL [Concomitant]
     Active Substance: ALFACALCIDOL
  9. AMLODIPINE [Concomitant]
     Active Substance: AMLODIPINE BESYLATE
  10. LISINOPRIL. [Concomitant]
     Active Substance: LISINOPRIL

REACTIONS (3)
  - Toxicity to various agents [Recovered/Resolved]
  - Neuromyopathy [Recovered/Resolved]
  - Drug interaction [Recovered/Resolved]
